FAERS Safety Report 8281883-4 (Version None)
Quarter: 2012Q2

REPORT INFORMATION
  Report Type: 
  Country: None (occurrence: None)
  Receive Date: 20120410
  Receipt Date: 20120402
  Transmission Date: 20120825
  Serious: Yes (Other)
  Sender: FDA-Public Use
  Company Number: ADR-2012-00657

PATIENT
  Sex: Female

DRUGS (2)
  1. LIORESAL [Suspect]
     Indication: MUSCLE SPASTICITY
  2. LIORESAL [Suspect]
     Indication: MULTIPLE SCLEROSIS

REACTIONS (8)
  - MUSCLE SPASTICITY [None]
  - DRUG EFFECT DECREASED [None]
  - DEVICE EXTRUSION [None]
  - DEVICE LEAKAGE [None]
  - MOOD SWINGS [None]
  - CONDITION AGGRAVATED [None]
  - WEIGHT DECREASED [None]
  - DEVICE DISLOCATION [None]
